FAERS Safety Report 6077679-4 (Version None)
Quarter: 2009Q1

REPORT INFORMATION
  Report Type: 
  Country: None (occurrence: None)
  Receive Date: 20090213
  Receipt Date: 20090204
  Transmission Date: 20090719
  Serious: Yes (Hospitalization)
  Sender: FDA-Public Use
  Company Number: FR-WYE-G02440208

PATIENT
  Sex: Female

DRUGS (5)
  1. VENLAFAXINE HYDROCHLORIDE [Suspect]
     Indication: MAJOR DEPRESSION
     Route: 048
     Dates: start: 20080619, end: 20080720
  2. VENLAFAXINE HYDROCHLORIDE [Suspect]
     Route: 048
     Dates: start: 20080721, end: 20081006
  3. VENLAFAXINE HYDROCHLORIDE [Suspect]
     Route: 048
     Dates: start: 20081008
  4. ESZOPICLONE [Suspect]
     Indication: MAJOR DEPRESSION
     Route: 048
     Dates: start: 20080619, end: 20081006
  5. ESZOPICLONE [Suspect]
     Route: 048
     Dates: start: 20081008

REACTIONS (1)
  - SCIATIC NERVE PALSY [None]
